FAERS Safety Report 7490243-5 (Version None)
Quarter: 2011Q2

REPORT INFORMATION
  Report Type: 
  Country: None (occurrence: None)
  Receive Date: 20110519
  Receipt Date: 20110514
  Transmission Date: 20111010
  Serious: No
  Sender: FDA-Public Use
  Company Number: US-PFIZER INC-2011104104

PATIENT
  Sex: Female
  Weight: 70 kg

DRUGS (3)
  1. LIPITOR [Suspect]
     Indication: BLOOD CHOLESTEROL INCREASED
     Dosage: 10 MG, 1X/DAY
     Route: 048
     Dates: start: 20110401
  2. PRILOSEC [Concomitant]
     Indication: GASTROOESOPHAGEAL REFLUX DISEASE
     Dosage: 20 MG, 1X/DAY
     Route: 048
  3. HYDROCHLOROTHIAZIDE AND LISINOPRIL [Suspect]
     Indication: BLOOD PRESSURE INCREASED
     Dosage: LISINOPRIL/HYDROCHLOROTHIAZIDE 20MG/25MG
     Route: 048

REACTIONS (2)
  - DRUG INEFFECTIVE [None]
  - ARTHRALGIA [None]
